FAERS Safety Report 5390775-X (Version None)
Quarter: 2007Q3

REPORT INFORMATION
  Report Type: 
  Country: None (occurrence: None)
  Receive Date: 20070716
  Receipt Date: 20070706
  Transmission Date: 20080115
  Serious: Yes (Other)
  Sender: FDA-Public Use
  Company Number: CHNY2007ZA02461

PATIENT
  Sex: Female

DRUGS (1)
  1. PENCICLOVIR [Suspect]
     Indication: HERPES SIMPLEX
     Dosage: TOPICAL
     Route: 061
     Dates: start: 20070625, end: 20070626

REACTIONS (3)
  - LIP SWELLING [None]
  - PRURITUS [None]
  - PYREXIA [None]
